FAERS Safety Report 8114069-4 (Version None)
Quarter: 2012Q1

REPORT INFORMATION
  Report Type: 
  Country: None (occurrence: None)
  Receive Date: 20120203
  Receipt Date: 20120123
  Transmission Date: 20120608
  Serious: Yes (Other)
  Sender: FDA-Public Use
  Company Number: US-ASTRAZENECA-2012SE06629

PATIENT
  Age: 66 Year
  Sex: Male

DRUGS (3)
  1. CUBICIN [Suspect]
     Indication: BACTERAEMIA
     Route: 042
  2. MEROPENEM [Suspect]
     Indication: BACTERAEMIA
     Route: 042
  3. FLUCONAZOLE [Suspect]
     Indication: BACTERAEMIA
     Route: 065

REACTIONS (1)
  - ACUTE MYELOID LEUKAEMIA RECURRENT [None]
